FAERS Safety Report 5205089-8 (Version None)
Quarter: 2007Q1

REPORT INFORMATION
  Report Type: 
  Country: None (occurrence: None)
  Receive Date: 20070110
  Receipt Date: 20061026
  Transmission Date: 20070707
  Serious: Yes (Hospitalization)
  Sender: FDA-Public Use
  Company Number: US-BRISTOL-MYERS SQUIBB COMPANY-13557004

PATIENT
  Age: 47 Year
  Sex: Male
  Weight: 91 kg

DRUGS (5)
  1. ABILIFY [Suspect]
     Indication: SCHIZOPHRENIA, PARANOID TYPE
     Route: 048
     Dates: start: 20060608
  2. ZANTAC [Concomitant]
     Dosage: DURATION OF THERAPY:  A YEAR OR MORE
  3. VITAMIN CAP [Concomitant]
  4. ACIPHEX [Concomitant]
  5. MINERAL TAB [Concomitant]

REACTIONS (5)
  - ABNORMAL BEHAVIOUR [None]
  - AGGRESSION [None]
  - AGITATION [None]
  - HEADACHE [None]
  - PSYCHOMOTOR HYPERACTIVITY [None]
